FAERS Safety Report 10200380 (Version 1)
Quarter: 2014Q2

REPORT INFORMATION
  Report Type: Spontaneous
  Country: PT (occurrence: PT)
  Receive Date: 20140528
  Receipt Date: 20140528
  Transmission Date: 20141212
  Serious: Yes (Other)
  Sender: FDA-Public Use
  Company Number: PT-JNJFOC-20140508541

PATIENT
  Age: 68 Year
  Sex: Female

DRUGS (9)
  1. KETOCONAZOLE [Suspect]
     Indication: METABOLIC DISORDER
     Route: 065
  2. KETOCONAZOLE [Suspect]
     Indication: BLOOD CORTICOTROPHIN ABNORMAL
     Route: 065
  3. POTASSIUM [Concomitant]
     Indication: HYPOKALAEMIA
     Route: 065
  4. SPIROLACTONE [Concomitant]
     Indication: HYPOKALAEMIA
     Route: 065
  5. LEVOTHYROXINE [Concomitant]
     Indication: HYPOTHYROIDISM
     Route: 065
  6. CALCIUM [Concomitant]
     Route: 065
  7. INSULIN [Concomitant]
     Route: 065
  8. MAGNESIUM [Concomitant]
     Route: 065
  9. ALBUMIN [Concomitant]
     Route: 065

REACTIONS (3)
  - Hepatitis toxic [Recovered/Resolved]
  - Blood cortisol increased [Unknown]
  - Off label use [Unknown]
